FAERS Safety Report 6397206-1 (Version None)
Quarter: 2009Q4

REPORT INFORMATION
  Report Type: 
  Country: None (occurrence: None)
  Receive Date: 20091012
  Receipt Date: 20091002
  Transmission Date: 20100525
  Serious: Yes (Hospitalization)
  Sender: FDA-Public Use
  Company Number: BR-ASTRAZENECA-2009SE17972

PATIENT
  Age: 61 Year
  Sex: Female
  Weight: 67 kg

DRUGS (7)
  1. ATACAND [Suspect]
     Indication: HYPERTENSION
     Route: 048
     Dates: start: 20070101, end: 20070101
  2. ATACAND HCT [Suspect]
     Indication: HYPERTENSION
     Dosage: 16/12.5 MG OD
     Route: 048
     Dates: start: 20050101, end: 20070101
  3. ATACAND HCT [Suspect]
     Dosage: 8/12.5 MG OD
     Route: 048
     Dates: start: 20070101
  4. OMEPRAZOLE [Suspect]
     Indication: GASTRITIS
     Route: 048
     Dates: start: 19990101, end: 20090101
  5. ALENIA [Concomitant]
     Indication: BRONCHIECTASIS
     Route: 055
     Dates: start: 20050101
  6. SYMBICORT 320/9 MCG TURBUHALER [Concomitant]
     Indication: BRONCHIECTASIS
     Route: 055
     Dates: start: 20050101
  7. FORASEQ [Concomitant]
     Indication: BRONCHIECTASIS
     Route: 055
     Dates: start: 20050101

REACTIONS (6)
  - ANAEMIA [None]
  - GASTRITIS [None]
  - INTESTINAL POLYP [None]
  - MEMORY IMPAIRMENT [None]
  - PNEUMONIA [None]
  - ULCER [None]
